FAERS Safety Report 19396100 (Version 1)
Quarter: 2021Q2

REPORT INFORMATION
  Report Type: Spontaneous
  Country: CN (occurrence: CN)
  Receive Date: 20210609
  Receipt Date: 20210609
  Transmission Date: 20210717
  Serious: Yes (Hospitalization, Other)
  Sender: FDA-Public Use
  Company Number: CN-SLATE RUN PHARMACEUTICALS-21CN000517

PATIENT

DRUGS (12)
  1. CYCLOPHOSPHAMIDE. [Concomitant]
     Active Substance: CYCLOPHOSPHAMIDE
     Dosage: SECOND CHEMOTHERAPY REGIMEN,  230 MILLIGRAM
     Route: 065
  2. MEROPENEM. [Concomitant]
     Active Substance: MEROPENEM
     Indication: ROTAVIRUS INFECTION
     Dosage: 300 MILLIGRAM, Q 8 HR
     Route: 042
  3. DOXORUBICIN [Concomitant]
     Active Substance: DOXORUBICIN
     Indication: NEUROBLASTOMA
     Dosage: THIRD CHEMOTHERAPY REGIMEN, 16.5 MILLIGRAM
     Route: 065
  4. IMMUNOGLOBULINS NOS [Concomitant]
     Active Substance: IMMUNE GLOBULIN NOS
     Indication: ROTAVIRUS INFECTION
     Route: 042
  5. CYCLOPHOSPHAMIDE. [Concomitant]
     Active Substance: CYCLOPHOSPHAMIDE
     Indication: NEUROBLASTOMA
     Dosage: THIRD CHEMOTHERAPY REGIMEN,  230 MILLIGRAM
     Route: 065
  6. FLUCONAZOLE. [Concomitant]
     Active Substance: FLUCONAZOLE
     Indication: ROTAVIRUS INFECTION
     Dosage: 48 MILLIGRAM, QD
     Route: 065
  7. TOPOTECAN [Concomitant]
     Active Substance: TOPOTECAN HYDROCHLORIDE
     Indication: NEUROBLASTOMA
     Dosage: SECOND CHEMOTHERAPY REGIMEN, 0.7 MILLIGRAM
     Route: 065
  8. VINCRISTINE [Concomitant]
     Active Substance: VINCRISTINE
     Indication: NEUROBLASTOMA
     Dosage: THIRD CHEMOTHERAPY REGIMEN, 0.4 MILLIGRAM
     Route: 065
  9. VANCOMYCIN HYDROCHLORIDE USP [Suspect]
     Active Substance: VANCOMYCIN HYDROCHLORIDE
     Indication: ROTAVIRUS INFECTION
     Dosage: 200 MILLIGRAM, Q 8 HR (WITH INFUSION DURATION OF 40 MIN)
     Route: 042
  10. TOPOTECAN [Concomitant]
     Active Substance: TOPOTECAN HYDROCHLORIDE
     Dosage: FIRST CHEMOTHERAPY REGIMEN, 0.7 MILLIGRAM
     Route: 065
  11. CYCLOPHOSPHAMIDE. [Concomitant]
     Active Substance: CYCLOPHOSPHAMIDE
     Dosage: FIRST CHEMOTHERAPY REGIMEN, 230 MILLIGRAM
     Route: 065
  12. CEFOPERAZONE + SULBACTAM [Concomitant]
     Active Substance: CEFOPERAZONE SODIUM\SULBACTAM
     Indication: ANTI-INFECTIVE THERAPY
     Dosage: 800 MILLIGRAM, Q 8 HR
     Route: 042

REACTIONS (13)
  - Heart rate increased [Unknown]
  - Drug level increased [Recovering/Resolving]
  - Toxicity to various agents [Unknown]
  - Off label use [Unknown]
  - Seizure [Recovered/Resolved]
  - Renal impairment [Recovered/Resolved]
  - Hypertension [Unknown]
  - Paranasal sinus injury [Unknown]
  - Magnetic resonance imaging head abnormal [Unknown]
  - Pyrexia [Recovered/Resolved]
  - Intracranial pressure increased [Unknown]
  - Cardiovascular disorder [Unknown]
  - Central nervous system lesion [Unknown]
